FAERS Safety Report 18254869 (Version 1)
Quarter: 2020Q3

REPORT INFORMATION
  Report Type: Spontaneous
  Country: GB (occurrence: GB)
  Receive Date: 20200910
  Receipt Date: 20200910
  Transmission Date: 20201103
  Serious: Yes (Other)
  Sender: FDA-Public Use
  Company Number: GB-MYLANLABS-2020M1076801

PATIENT
  Age: 14 Year
  Sex: Female

DRUGS (12)
  1. DEPO?PROVERA [Suspect]
     Active Substance: MEDROXYPROGESTERONE ACETATE
     Indication: CONTRACEPTION
     Dosage: UNK (FIRST INJECTION)
     Route: 030
     Dates: start: 20090623
  2. MALATHION. [Suspect]
     Active Substance: MALATHION
     Dosage: UNK
     Route: 061
     Dates: start: 20090806, end: 20090813
  3. MALATHION. [Suspect]
     Active Substance: MALATHION
     Indication: ACARODERMATITIS
     Dosage: UNK
     Dates: start: 20090623
  4. FLUCLOXACILLIN [Suspect]
     Active Substance: FLUCLOXACILLIN
     Indication: ACARODERMATITIS
     Dosage: 1000 MILLIGRAM, QD (250 MG, FOUR TIMES DAILY)
     Dates: start: 20090710
  5. PERMETHRIN. [Suspect]
     Active Substance: PERMETHRIN
     Indication: ACARODERMATITIS
     Dosage: UNK
     Route: 061
     Dates: start: 20090917, end: 20090924
  6. CETIRIZINE [Suspect]
     Active Substance: CETIRIZINE HYDROCHLORIDE
     Indication: ACARODERMATITIS
     Dosage: 10 MILLIGRAM, QD (10 MG, ONCE DAILY)
     Dates: start: 20090917, end: 20091013
  7. CETIRIZINE [Suspect]
     Active Substance: CETIRIZINE HYDROCHLORIDE
     Indication: SEASONAL ALLERGY
  8. PAROXETINE. [Suspect]
     Active Substance: PAROXETINE
     Indication: PRODUCT USED FOR UNKNOWN INDICATION
     Dosage: UNK
  9. DEPO?PROVERA [Suspect]
     Active Substance: MEDROXYPROGESTERONE ACETATE
     Dosage: UNK (SECOND INJECTION)
     Route: 030
     Dates: start: 20090911
  10. TRIMETHOPRIM. [Suspect]
     Active Substance: TRIMETHOPRIM
     Indication: URINARY TRACT INFECTION
     Dosage: 400 MILLIGRAM, QD (200 MG, TWICE DAILY)
     Dates: start: 20090604
  11. FUCIDIN H                          /00524501/ [Suspect]
     Active Substance: FUSIDATE SODIUM\HYDROCORTISONE ACETATE
     Indication: ACARODERMATITIS
     Dosage: UNK, QD (UNK, TWICE DAILY)
     Dates: start: 20090710
  12. CERVARIX [Suspect]
     Active Substance: HUMAN PAPILLOMAVIRUS TYPE 16 L1 CAPSID PROTEIN RESIDUES 2-471 ANTIGEN\HUMAN PAPILLOMAVIRUS TYPE 18 L1 CAPSID PROTEIN RESIDUES 2-472 ANTIGEN
     Indication: PROPHYLAXIS
     Dosage: 1 DOSAGE FORM, TOTAL (1 DF, SINGLE)
     Route: 030
     Dates: start: 20091008, end: 20091008

REACTIONS (2)
  - Maternal exposure during pregnancy [Unknown]
  - Drug ineffective [Unknown]

NARRATIVE: CASE EVENT DATE: 2009
